FAERS Safety Report 17070634 (Version 2)
Quarter: 2019Q4

REPORT INFORMATION
  Report Type: Spontaneous
  Country: US (occurrence: US)
  Receive Date: 20191125
  Receipt Date: 20191226
  Transmission Date: 20200122
  Serious: Yes (Hospitalization)
  Sender: FDA-Public Use
  Company Number: US-AMNEAL PHARMACEUTICALS-2019-AMRX-02739

PATIENT
  Age: 10 Month
  Sex: Female

DRUGS (1)
  1. BOSENTAN. [Suspect]
     Active Substance: BOSENTAN
     Indication: PULMONARY HYPERTENSION
     Dosage: 16 MILLIGRAM, 2 /DAY
     Route: 065

REACTIONS (1)
  - Respiratory distress [Unknown]

NARRATIVE: CASE EVENT DATE: 20191024
